FAERS Safety Report 4498786-3 (Version None)
Quarter: 2004Q3

REPORT INFORMATION
  Report Type: 
  Country: None (occurrence: None)
  Receive Date: 20040927
  Receipt Date: 20040616
  Transmission Date: 20050211
  Serious: No
  Sender: FDA-Public Use
  Company Number: USA040670367

PATIENT
  Age: 7 Year
  Sex: Male

DRUGS (1)
  1. STRATTERA [Suspect]
     Dosage: 25 MG IN THE MORNING
     Dates: start: 20040421

REACTIONS (4)
  - ABDOMINAL PAIN UPPER [None]
  - LETHARGY [None]
  - SLEEP DISORDER [None]
  - WEIGHT DECREASED [None]
